FAERS Safety Report 5233902-7 (Version None)
Quarter: 2007Q1

REPORT INFORMATION
  Report Type: 
  Country: None (occurrence: None)
  Receive Date: 20070208
  Receipt Date: 20070129
  Transmission Date: 20070707
  Serious: Yes (Other)
  Sender: FDA-Public Use
  Company Number: US-JNJFOC-20070200005

PATIENT
  Sex: Male
  Weight: 83.92 kg

DRUGS (6)
  1. DURAGESIC [Suspect]
     Indication: PAIN
     Route: 062
  2. DURAGESIC [Suspect]
     Indication: SPINAL CORD NEOPLASM
     Route: 062
  3. FENTANYL TRANSDERMAL SYSTEM [Suspect]
     Indication: PAIN
     Route: 062
  4. FENTANYL TRANSDERMAL SYSTEM [Suspect]
     Indication: SPINAL CORD NEOPLASM
     Route: 062
  5. WELLBUTRIN XL [Concomitant]
     Indication: DEPRESSION
     Route: 048
  6. ACETAMINOPHEN AND OXYCODONE HCL [Concomitant]
     Indication: PAIN
     Dosage: 5/325MG AS NEEDED
     Route: 048

REACTIONS (6)
  - BLOOD CHOLESTEROL INCREASED [None]
  - CD4 LYMPHOCYTES INCREASED [None]
  - DEPRESSION [None]
  - INADEQUATE ANALGESIA [None]
  - NEOPLASM PROGRESSION [None]
  - SINUS CONGESTION [None]
